FAERS Safety Report 17596766 (Version 2)
Quarter: 2020Q2

REPORT INFORMATION
  Report Type: Spontaneous
  Country: TW (occurrence: TW)
  Receive Date: 20200330
  Receipt Date: 20200409
  Transmission Date: 20200713
  Serious: Yes (Hospitalization)
  Sender: FDA-Public Use
  Company Number: TW-ROCHE-2571682

PATIENT
  Age: 68 Year
  Sex: Female
  Weight: 49 kg

DRUGS (1)
  1. MABTHERA [Suspect]
     Active Substance: RITUXIMAB
     Indication: RHEUMATOID ARTHRITIS
     Dosage: TWO DOSES OF 1000MG
     Route: 042
     Dates: start: 20190923, end: 20191021

REACTIONS (1)
  - Vertebral osteophyte [Not Recovered/Not Resolved]

NARRATIVE: CASE EVENT DATE: 20200309
